FAERS Safety Report 9228602 (Version 1)
Quarter: 2013Q2

REPORT INFORMATION
  Report Type: Report from Study
  Country: DE (occurrence: DE)
  Receive Date: 20130412
  Receipt Date: 20130412
  Transmission Date: 20140414
  Serious: Yes (Other)
  Sender: FDA-Public Use
  Company Number: DE-ROCHE-1214036

PATIENT
  Age: 54 Year
  Sex: Male

DRUGS (4)
  1. ALTEPLASE [Suspect]
     Indication: ACUTE MYOCARDIAL INFARCTION
     Route: 042
  2. HIRUDIN [Concomitant]
     Indication: ACUTE MYOCARDIAL INFARCTION
     Dosage: 50 HOURS
     Route: 042
     Dates: start: 19940525, end: 19940527
  3. NITRO (GLYCERYL TRINITRATE) [Concomitant]
     Route: 042
     Dates: start: 19940525, end: 19940527
  4. ASPISOL (ACETYLSALICYLIC ACID) [Concomitant]
     Indication: ACUTE MYOCARDIAL INFARCTION
     Route: 042
     Dates: start: 19940525

REACTIONS (1)
  - Angina pectoris [Recovered/Resolved]
